FAERS Safety Report 11444775 (Version 2)
Quarter: 2015Q4

REPORT INFORMATION
  Report Type: Report from Study
  Country: CA (occurrence: CA)
  Receive Date: 20150902
  Receipt Date: 20151012
  Transmission Date: 20160304
  Serious: Yes (Other)
  Sender: FDA-Public Use
  Company Number: CA-ABBVIE-15K-028-1452935-00

PATIENT
  Sex: Male

DRUGS (1)
  1. HUMIRA [Suspect]
     Active Substance: ADALIMUMAB
     Indication: COLITIS ULCERATIVE
     Route: 058
     Dates: start: 20110228, end: 201508

REACTIONS (3)
  - Psoriasis [Unknown]
  - Systemic lupus erythematosus [Unknown]
  - Cellulitis [Unknown]

NARRATIVE: CASE EVENT DATE: 2015
